FAERS Safety Report 7170506-3 (Version None)
Quarter: 2010Q4

REPORT INFORMATION
  Report Type: 
  Country: None (occurrence: None)
  Receive Date: 20101217
  Receipt Date: 20101206
  Transmission Date: 20110411
  Serious: Yes (Hospitalization)
  Sender: FDA-Public Use
  Company Number: PHHY2010FR83581

PATIENT
  Sex: Male

DRUGS (4)
  1. AFINITOR [Suspect]
     Indication: RENAL CANCER
     Dosage: 10 MG, UNK
     Dates: start: 20100721, end: 20101111
  2. AUGMENTIN '125' [Concomitant]
  3. CIFLOX [Concomitant]
  4. PRIMPERAN TAB [Concomitant]

REACTIONS (9)
  - ABDOMINAL DISTENSION [None]
  - ASCITES [None]
  - ASPIRATION BIOPSY [None]
  - DYSPNOEA [None]
  - HYPOVENTILATION [None]
  - NAUSEA [None]
  - PERFORMANCE STATUS DECREASED [None]
  - POLLAKIURIA [None]
  - PYREXIA [None]
